FAERS Safety Report 15316395 (Version 2)
Quarter: 2018Q3

REPORT INFORMATION
  Report Type: Spontaneous
  Country: US (occurrence: US)
  Receive Date: 20180824
  Receipt Date: 20180912
  Transmission Date: 20181010
  Serious: Yes (Other)
  Sender: FDA-Public Use
  Company Number: US-VIIV HEALTHCARE LIMITED-US2018GSK151410

PATIENT
  Sex: Male
  Weight: 106 kg

DRUGS (1)
  1. TRIUMEQ [Suspect]
     Active Substance: ABACAVIR SULFATE\DOLUTEGRAVIR SODIUM\LAMIVUDINE
     Indication: HIV INFECTION
     Dosage: UNK, QD
     Route: 048
     Dates: start: 201802, end: 20180817

REACTIONS (5)
  - Transaminases increased [Unknown]
  - Blood creatinine increased [Unknown]
  - Hepatitis [Unknown]
  - Splenomegaly [Unknown]
  - Nephropathy [Unknown]
